FAERS Safety Report 25310882 (Version 1)
Quarter: 2025Q2

REPORT INFORMATION
  Report Type: Spontaneous
  Country: GB (occurrence: GB)
  Receive Date: 20250514
  Receipt Date: 20250514
  Transmission Date: 20250716
  Serious: Yes (Disabling)
  Sender: NORDIC PHARMA
  Company Number: None

PATIENT
  Age: 54 Year
  Sex: Female

DRUGS (1)
  1. METHOTREXATE SODIUM [Suspect]
     Active Substance: METHOTREXATE SODIUM
     Indication: Crohn^s disease
     Dosage: 20MG ONCE A WEEK
     Dates: start: 2022

REACTIONS (2)
  - Catarrh [Not Recovered/Not Resolved]
  - Motion sickness [Recovering/Resolving]

NARRATIVE: CASE EVENT DATE: 20220101
